FAERS Safety Report 25639541 (Version 1)
Quarter: 2025Q3

REPORT INFORMATION
  Report Type: Report from Study
  Country: US (occurrence: US)
  Receive Date: 20250804
  Receipt Date: 20250804
  Transmission Date: 20251021
  Serious: Yes (Hospitalization)
  Sender: ELI LILLY AND COMPANY
  Company Number: US-ELI_LILLY_AND_COMPANY-US202507022085

PATIENT
  Age: 80 Year
  Sex: Male

DRUGS (2)
  1. KISUNLA [Suspect]
     Active Substance: DONANEMAB-AZBT
     Indication: Product used for unknown indication
     Route: 065
  2. KISUNLA [Suspect]
     Active Substance: DONANEMAB-AZBT
     Route: 065
     Dates: start: 20250625

REACTIONS (5)
  - Atrioventricular block first degree [Unknown]
  - Chest discomfort [Unknown]
  - Chest pain [Unknown]
  - Infusion related reaction [Recovering/Resolving]
  - Infusion related reaction [Unknown]

NARRATIVE: CASE EVENT DATE: 20250625
